FAERS Safety Report 17145081 (Version 1)
Quarter: 2019Q4

REPORT INFORMATION
  Report Type: Spontaneous
  Country: US (occurrence: US)
  Receive Date: 20191212
  Receipt Date: 20191212
  Transmission Date: 20200122
  Serious: No
  Sender: FDA-Public Use
  Company Number: US-SA-2019SA341832

PATIENT
  Sex: Female

DRUGS (1)
  1. DUPIXENT [Suspect]
     Active Substance: DUPILUMAB
     Indication: DERMATITIS ATOPIC
     Dosage: 300 MG, QOW

REACTIONS (6)
  - Swelling [Unknown]
  - Erythema [Unknown]
  - Contusion [Unknown]
  - Pruritus [Unknown]
  - Therapeutic response decreased [Unknown]
  - Dermatitis [Unknown]

NARRATIVE: CASE EVENT DATE: 2019
